FAERS Safety Report 15531198 (Version 3)
Quarter: 2018Q4

REPORT INFORMATION
  Report Type: Spontaneous
  Country: US (occurrence: US)
  Receive Date: 20181019
  Receipt Date: 20181024
  Transmission Date: 20190205
  Serious: Yes (Other)
  Sender: FDA-Public Use
  Company Number: US-JNJFOC-20181011511

PATIENT
  Age: 10 Year
  Sex: Female
  Weight: 54.43 kg

DRUGS (1)
  1. NEUTROGENA TGEL DAILY CONTROL 2 IN 1 [Suspect]
     Active Substance: PYRITHIONE ZINC
     Indication: DANDRUFF
     Dosage: QUARTER SIZE JUST TO SCALP TWICE TOTAL, ONCE ON 30-SEP-2018 AND ONCE ON 04-OCT-2018
     Route: 061
     Dates: start: 20180930

REACTIONS (2)
  - Hypersensitivity [Not Recovered/Not Resolved]
  - Pharyngeal oedema [Not Recovered/Not Resolved]

NARRATIVE: CASE EVENT DATE: 20180930
